FAERS Safety Report 9413594 (Version 1)
Quarter: 2013Q3

REPORT INFORMATION
  Report Type: Spontaneous
  Country: US (occurrence: None)
  Receive Date: 20130716
  Receipt Date: 20130716
  Transmission Date: 20140515
  Serious: Yes (Hospitalization, Other)
  Sender: FDA-Public Use
  Company Number: 2013MD000011

PATIENT
  Age: 22 Year
  Sex: Female
  Weight: 64.64 kg

DRUGS (3)
  1. LNG20 [Suspect]
     Indication: CONTRACEPTION
     Route: 015
     Dates: start: 20100211, end: 20130516
  2. ALBUTEROL [Concomitant]
  3. FLUTICASONE PROPIONATE [Concomitant]

REACTIONS (8)
  - Ectopic pregnancy with contraceptive device [None]
  - Maternal exposure during pregnancy [None]
  - Pelvic haemorrhage [None]
  - Thrombosis [None]
  - Haemorrhagic ovarian cyst [None]
  - Device dislocation [None]
  - Pelvic fluid collection [None]
  - Abortion induced [None]
